FAERS Safety Report 7247495-6 (Version None)
Quarter: 2011Q1

REPORT INFORMATION
  Report Type: 
  Country: None (occurrence: None)
  Receive Date: 20110127
  Receipt Date: 20110117
  Transmission Date: 20110831
  Serious: Yes (Hospitalization, Other)
  Sender: FDA-Public Use
  Company Number: JP-BRISTOL-MYERS SQUIBB COMPANY-15504996

PATIENT
  Age: 11 Year
  Sex: Male

DRUGS (10)
  1. TEMOZOLOMIDE [Suspect]
     Indication: MEDULLOBLASTOMA
     Dosage: CAPS
     Route: 048
  2. CYCLOPHOSPHAMIDE [Suspect]
     Indication: MEDULLOBLASTOMA
  3. DEXAMETHASONE [Suspect]
     Indication: MEDULLOBLASTOMA
     Dosage: INJ
     Route: 037
  4. VEPESID [Suspect]
     Indication: MEDULLOBLASTOMA
     Route: 041
  5. BRIPLATIN [Suspect]
     Indication: MEDULLOBLASTOMA
     Route: 041
  6. THIOTEPA [Suspect]
     Indication: MEDULLOBLASTOMA
  7. MELPHALAN HYDROCHLORIDE [Suspect]
     Indication: MEDULLOBLASTOMA
  8. VEPESID [Suspect]
     Indication: MEDULLOBLASTOMA
     Route: 048
  9. VINCRISTINE [Suspect]
     Indication: MEDULLOBLASTOMA
     Dosage: INJ
     Route: 042
  10. METHOTREXATE [Suspect]
     Indication: MEDULLOBLASTOMA
     Dosage: INJ
     Route: 037

REACTIONS (2)
  - FOCAL NODULAR HYPERPLASIA [None]
  - PNEUMONIA [None]
